FAERS Safety Report 8362040-X (Version None)
Quarter: 2012Q2

REPORT INFORMATION
  Report Type: 
  Country: None (occurrence: None)
  Receive Date: 20120515
  Receipt Date: 20120430
  Transmission Date: 20120825
  Serious: Yes (Hospitalization)
  Sender: FDA-Public Use
  Company Number: TR-SPECTRUM PHARMACEUTICALS, INC.-12-F-TR-00073

PATIENT
  Age: 59 Year
  Sex: Male

DRUGS (7)
  1. FLUOROURACIL [Suspect]
     Dosage: 500 MG/M2, WEEKLY
     Route: 040
  2. LEUCOVORIN CALCIUM [Suspect]
     Indication: RECTAL CANCER
     Dosage: 150 MG/M2, UNK
     Route: 065
  3. LEUCOVORIN CALCIUM [Suspect]
     Dosage: 200 MG/M2 AS A 2 HOUR IV INFUSION
     Route: 042
  4. STALEVO 100 [Concomitant]
     Indication: PARKINSON'S DISEASE
     Dosage: 3 TABLETS, QD
     Route: 065
  5. FLUOROURACIL [Suspect]
     Indication: RECTAL CANCER
     Dosage: 400 MG/M2, UNK
     Route: 065
  6. PRAMIPEXOLE DIHYDROCHLORIDE [Concomitant]
     Indication: PARKINSON'S DISEASE
     Dosage: 1 MG, QD
     Route: 065
  7. OXALIPLATIN [Suspect]
     Indication: RECTAL CANCER
     Dosage: 85 MG/M2 AS A 2 HOUR IV INFUSION
     Route: 042

REACTIONS (9)
  - ENCEPHALOPATHY [None]
  - VOMITING [None]
  - NAUSEA [None]
  - INCOHERENT [None]
  - AMMONIA INCREASED [None]
  - DIARRHOEA [None]
  - AMNESIA [None]
  - CONFUSIONAL STATE [None]
  - DISORIENTATION [None]
